FAERS Safety Report 16918293 (Version 2)
Quarter: 2019Q4

REPORT INFORMATION
  Report Type: Spontaneous
  Country: US (occurrence: US)
  Receive Date: 20191015
  Receipt Date: 20191217
  Transmission Date: 20200122
  Serious: Yes (Other)
  Sender: FDA-Public Use
  Company Number: US-PARI RESPIRATORY EQUIPMENT, INC.-2019PAR00103

PATIENT
  Age: 2 Year
  Sex: Male
  Weight: 14.38 kg

DRUGS (9)
  1. KITABIS PAK [Suspect]
     Active Substance: TOBRAMYCIN
     Indication: CYSTIC FIBROSIS
  2. CREON [Concomitant]
     Active Substance: PANCRELIPASE AMYLASE\PANCRELIPASE LIPASE\PANCRELIPASE PROTEASE
     Dosage: 3.5 CAPSULES, AS DIRECTED (TAKE 3.5 TO 4 CAPS WITH MEALAS AND 1 CAP WITH SNACKS/MAX IS 13 CAPS PER D
     Route: 048
  3. MULTIVITAMIN -MINERALS-FOLIC ACID-COENZYME Q10 [Concomitant]
     Dosage: 2 ML, AS DIRECTED WITH MEAL AND ENZYMES
     Route: 048
  4. MULTIVITAMIN -MINERALS-FOLIC ACID-COENZYME Q10 [Concomitant]
     Dosage: 1 ML, 1X/DAY
     Route: 048
  5. LUMICAFTOR-IVACAFTOR [Concomitant]
     Dosage: 1 DOSAGE UNITS WITH FAT CONTAINING FOOD
     Route: 048
  6. PROAIR HFA [Concomitant]
     Active Substance: ALBUTEROL SULFATE
     Dosage: 2 DOSAGE UNITS, 2X/DAY
  7. ALBUTEROL SULFATE 0.083% [Concomitant]
     Dosage: 1 DOSAGE UNITS, 2X/DAY AND EVERY 4 HOURS AS NEEDED
  8. KITABIS PAK [Suspect]
     Active Substance: TOBRAMYCIN
     Indication: ILL-DEFINED DISORDER
     Dosage: 5 ML, 2X/DAY
  9. PULMOZYME [Concomitant]
     Active Substance: DORNASE ALFA
     Dosage: 2.5 ML, 1X/DAY

REACTIONS (3)
  - Product use issue [Not Recovered/Not Resolved]
  - Skin laceration [Recovered/Resolved]
  - Fall [Recovered/Resolved]

NARRATIVE: CASE EVENT DATE: 20190922
